FAERS Safety Report 7518884-7 (Version None)
Quarter: 2011Q2

REPORT INFORMATION
  Report Type: 
  Country: None (occurrence: None)
  Receive Date: 20110523
  Receipt Date: 20110519
  Transmission Date: 20111010
  Serious: Yes (Hospitalization)
  Sender: FDA-Public Use
  Company Number: SP03701

PATIENT
  Age: 66 Year
  Sex: Male

DRUGS (1)
  1. OSMOPREP [Suspect]
     Indication: BOWEL PREPARATION
     Dosage: (32 TABLETS, ORAL)
     Route: 048
     Dates: start: 20110213, end: 20110213

REACTIONS (3)
  - OESOPHAGITIS [None]
  - HIATUS HERNIA [None]
  - GASTRIC ULCER [None]
